FAERS Safety Report 9057225 (Version 5)
Quarter: 2013Q2

REPORT INFORMATION
  Report Type: Spontaneous
  Country: CA (occurrence: CA)
  Receive Date: 20130131
  Receipt Date: 20130628
  Transmission Date: 20140414
  Serious: Yes (Hospitalization)
  Sender: FDA-Public Use
  Company Number: CA-GLAXOSMITHKLINE-A1002812A

PATIENT
  Age: 80 Year
  Sex: Female

DRUGS (5)
  1. VOTRIENT [Suspect]
     Indication: RENAL CANCER METASTATIC
     Dosage: 800MG PER DAY
     Route: 048
     Dates: start: 20120502
  2. PANTOLOC [Concomitant]
  3. SYNTHROID [Concomitant]
  4. BISOPROLOL [Concomitant]
  5. UNSPECIFIED MEDICATION [Concomitant]

REACTIONS (6)
  - Headache [Recovering/Resolving]
  - Blood pressure increased [Recovering/Resolving]
  - Knee operation [Not Recovered/Not Resolved]
  - Adverse drug reaction [Unknown]
  - Platelet count decreased [Not Recovered/Not Resolved]
  - Therapeutic response unexpected [Unknown]
